FAERS Safety Report 8830507 (Version 2)
Quarter: 2012Q4

REPORT INFORMATION
  Report Type: 
  Country: US (occurrence: None)
  Receive Date: 20121005
  Receipt Date: 20121023
  Transmission Date: 20130627
  Serious: Yes (Other)
  Sender: FDA-Public Use
  Company Number: 2011029600

PATIENT
  Sex: Male
  Weight: 86.64 kg

DRUGS (18)
  1. HIZENTRA [Suspect]
     Indication: HYPOGAMMAGLOBULINAEMIA
     Dosage: 9 g, 1x/week, (45 ml) 3-4 sites over 1-2 hours since 2011 subcutaneous
     Route: 058
     Dates: start: 20110815
  2. HIZENTRA [Suspect]
     Indication: HYPOGAMMAGLOBULINAEMIA
     Dosage: (45 ml) three to four sites over one to two hours
     Route: 058
     Dates: start: 20110817
  3. HIZENTRA [Suspect]
     Indication: HYPOGAMMAGLOBULINAEMIA
     Dosage: 9 g 1x/week, (45 ml) three to four sites over one to two hours subcutaneous
     Route: 058
  4. HIZENTRA [Suspect]
     Indication: HYPOGAMMAGLOBULINAEMIA
     Route: 058
  5. HIZENTRA [Suspect]
     Indication: HYPOGAMMAGLOBULINAEMIA
     Route: 058
     Dates: start: 2011
  6. HIZENTRA [Suspect]
     Indication: HYPOGAMMAGLOBULINAEMIA
     Route: 058
     Dates: start: 2011
  7. HIZENTRA [Suspect]
     Indication: HYPOGAMMAGLOBULINAEMIA
     Dosage: 12 g 1x/week, in 4 sites over 1-2 hours subcutaneous
     Route: 058
  8. KLONOPIN (CLONAZEPAM) [Concomitant]
  9. LYRICA (PREGABALIN) [Concomitant]
  10. ADVAIR (SERETIDE /01420901/) [Concomitant]
  11. ALBUTEROL (SALBUTAMOL) [Concomitant]
  12. WELLBUTRIN XL (BUPROPION) [Concomitant]
  13. NAPROXEN (NAPROXEN) [Concomitant]
  14. NORCO (VICODIN) [Concomitant]
  15. DIPHENHYDRAMINE (DIPHENHYDRAMINE) [Concomitant]
  16. EMLA (EMLA /00675501/) [Concomitant]
  17. EPIPEN (EPINEPHRINE) [Concomitant]
  18. LMX (LIDOCAINE) [Concomitant]

REACTIONS (14)
  - Back pain [None]
  - Headache [None]
  - Nausea [None]
  - Vomiting [None]
  - Infusion site pain [None]
  - Infusion related reaction [None]
  - Skin exfoliation [None]
  - Arthralgia [None]
  - Myalgia [None]
  - Influenza like illness [None]
  - Dyspnoea [None]
  - Feeling abnormal [None]
  - Pyrexia [None]
  - Fatigue [None]
